FAERS Safety Report 26071657 (Version 1)
Quarter: 2025Q4

REPORT INFORMATION
  Report Type: Spontaneous
  Country: EU (occurrence: EU)
  Receive Date: 20251120
  Receipt Date: 20251120
  Transmission Date: 20260118
  Serious: Yes (Other)
  Sender: ABBVIE
  Company Number: EU-ABBVIE-6554485

PATIENT
  Sex: Female

DRUGS (2)
  1. ADALIMUMAB [Suspect]
     Active Substance: ADALIMUMAB
     Indication: Granuloma annulare
     Dosage: FOR SEVERAL YEARS
     Route: 058
  2. UPADACITINIB [Suspect]
     Active Substance: UPADACITINIB
     Indication: Granuloma annulare
     Route: 048

REACTIONS (3)
  - Lupus-like syndrome [Unknown]
  - Off label use [Unknown]
  - Off label use [Unknown]
